FAERS Safety Report 8193445-8 (Version None)
Quarter: 2012Q1

REPORT INFORMATION
  Report Type: 
  Country: None (occurrence: None)
  Receive Date: 20120308
  Receipt Date: 20120223
  Transmission Date: 20120608
  Serious: Yes (Other)
  Sender: FDA-Public Use
  Company Number: US-AMGEN-COG345598

PATIENT
  Age: 57 Year
  Sex: Female
  Weight: 71.3 kg

DRUGS (3)
  1. METHOTREXATE [Concomitant]
     Dosage: 10 MG, QWK
     Route: 048
  2. ENBREL [Suspect]
     Indication: RHEUMATOID ARTHRITIS
     Dosage: 50 MG, WEEKLY
     Route: 058
  3. PREDNISONE TAB [Suspect]
     Dosage: UNK

REACTIONS (11)
  - RESPIRATORY TRACT CONGESTION [None]
  - SEASONAL ALLERGY [None]
  - RHEUMATOID ARTHRITIS [None]
  - INCREASED TENDENCY TO BRUISE [None]
  - COUGH [None]
  - PHOTOSENSITIVITY REACTION [None]
  - NASAL CONGESTION [None]
  - PAIN [None]
  - PULMONARY GRANULOMA [None]
  - SINUSITIS [None]
  - INFLUENZA [None]
